FAERS Safety Report 7420390-5 (Version None)
Quarter: 2011Q2

REPORT INFORMATION
  Report Type: 
  Country: None (occurrence: None)
  Receive Date: 20110418
  Receipt Date: 20110413
  Transmission Date: 20111010
  Serious: Yes (Death, Hospitalization, Other)
  Sender: FDA-Public Use
  Company Number: PHHY2010US81380

PATIENT
  Sex: Male
  Weight: 81.2 kg

DRUGS (18)
  1. CYMBALTA [Concomitant]
     Dosage: 1 DF, DAILY
     Route: 048
  2. UROCIT-K [Concomitant]
     Dosage: 02 DF, BID
     Route: 048
  3. TAMSULOSIN [Concomitant]
     Dosage: 0.4 MG, DAILY
     Route: 048
     Dates: start: 20101015
  4. SYNTHROID [Concomitant]
     Dosage: 1 DF, DAILY
     Route: 048
  5. AFINITOR [Suspect]
     Indication: METASTATIC RENAL CELL CARCINOMA
     Dosage: 10 MG, QD
     Route: 048
     Dates: start: 20101029, end: 20110102
  6. FOLIC ACID [Concomitant]
     Dosage: 1 DF, DAILY
     Route: 048
  7. FLOMAX [Concomitant]
     Dosage: 0.4 MG, QD
  8. MAALOX [Concomitant]
  9. NORCO [Concomitant]
  10. GUAIFENESIN W/HYDROCODONE BITARTRATE [Concomitant]
  11. NYSTATIN [Concomitant]
  12. MORPHINE [Concomitant]
     Dosage: 1 DF, BID
     Route: 048
  13. PAROXETINE [Concomitant]
     Dosage: 1 DF, BID
     Route: 048
  14. LIDOCAINE [Concomitant]
  15. BENADRYL [Concomitant]
  16. POTASSIUM CITRATE [Concomitant]
     Dosage: 2 DF, BID
     Route: 048
     Dates: start: 20101029
  17. HYDROCODONE BITARTRATE [Concomitant]
     Dosage: UNK
     Route: 048
     Dates: start: 20101008
  18. ASPIRIN [Concomitant]
     Dosage: 1 DF, DAILY
     Route: 048

REACTIONS (28)
  - TACHYCARDIA [None]
  - GLOMERULAR FILTRATION RATE DECREASED [None]
  - PROTEIN TOTAL INCREASED [None]
  - BLOOD LACTATE DEHYDROGENASE INCREASED [None]
  - HAEMOGLOBIN DECREASED [None]
  - GLOSSODYNIA [None]
  - APHTHOUS STOMATITIS [None]
  - METASTASES TO LUNG [None]
  - DEPRESSION [None]
  - HYPOTHYROIDISM [None]
  - STOMATITIS [None]
  - ANAEMIA [None]
  - DYSPHAGIA [None]
  - VOMITING [None]
  - NEOPLASM MALIGNANT [None]
  - PLEURAL EFFUSION [None]
  - MOOD ALTERED [None]
  - BACK PAIN [None]
  - RED BLOOD CELL COUNT DECREASED [None]
  - BLOOD CHLORIDE DECREASED [None]
  - MOUTH ULCERATION [None]
  - DECREASED APPETITE [None]
  - ASPARTATE AMINOTRANSFERASE INCREASED [None]
  - CARBON DIOXIDE INCREASED [None]
  - HAEMATOCRIT DECREASED [None]
  - BLOOD ALBUMIN DECREASED [None]
  - OROPHARYNGEAL PAIN [None]
  - DRUG INEFFECTIVE [None]
